FAERS Safety Report 15050489 (Version 1)
Quarter: 2018Q2

REPORT INFORMATION
  Report Type: Other
  Country: HR (occurrence: HR)
  Receive Date: 20180622
  Receipt Date: 20180622
  Transmission Date: 20180711
  Serious: Yes (Other)
  Sender: FDA-Public Use
  Company Number: HR-CELLTRION INC.-2018HR020703

PATIENT

DRUGS (5)
  1. METHOTREXATE. [Concomitant]
     Active Substance: METHOTREXATE
     Indication: RHEUMATOID ARTHRITIS
     Dosage: 17.5 MG TABLETS, 1 WEEK
     Route: 048
  2. MEDROL [Concomitant]
     Active Substance: METHYLPREDNISOLONE
     Indication: RHEUMATOID ARTHRITIS
     Dosage: 6 MG 1 DAY
     Route: 048
  3. ISONIAZID. [Concomitant]
     Active Substance: ISONIAZID
     Indication: INTERFERON GAMMA RELEASE ASSAY POSITIVE
     Dosage: 300 MG 1 DAY
     Route: 048
  4. REMSIMA [Suspect]
     Active Substance: INFLIXIMAB
     Indication: RHEUMATOID ARTHRITIS
     Dosage: UNK, INFUSION AMPOULES, DRY VIALS/ BOTTLES
     Route: 042
     Dates: start: 201707, end: 201707
  5. REMSIMA [Suspect]
     Active Substance: INFLIXIMAB
     Dosage: UNK, INFUSION AMPOULES, DRY VIALS/ BOTTLES
     Route: 042
     Dates: start: 201805, end: 201805

REACTIONS (3)
  - Joint swelling [Not Recovered/Not Resolved]
  - Arthralgia [Not Recovered/Not Resolved]
  - Drug ineffective [Not Recovered/Not Resolved]

NARRATIVE: CASE EVENT DATE: 201804
